FAERS Safety Report 25379372 (Version 2)
Quarter: 2025Q2

REPORT INFORMATION
  Report Type: Spontaneous
  Country: US (occurrence: US)
  Receive Date: 20250530
  Receipt Date: 20250609
  Transmission Date: 20250717
  Serious: Yes (Hospitalization, Other)
  Sender: RANBAXY
  Company Number: US-SUN PHARMACEUTICAL INDUSTRIES LTD-2025R1-508835

PATIENT
  Age: 36 Year
  Sex: Female
  Weight: 54.7 kg

DRUGS (2)
  1. LIDOCAINE [Suspect]
     Active Substance: LIDOCAINE
     Indication: Bronchoscopy
     Route: 061
  2. BENZOCAINE (BENZOCAINE) [Suspect]
     Active Substance: BENZOCAINE
     Indication: Bronchoscopy
     Route: 061

REACTIONS (1)
  - Methaemoglobinaemia [Recovering/Resolving]
